FAERS Safety Report 10735613 (Version 1)
Quarter: 2015Q1

REPORT INFORMATION
  Report Type: Spontaneous
  Country: CA (occurrence: None)
  Receive Date: 20150121
  Receipt Date: 20150121
  Transmission Date: 20150721
  Serious: Yes (Death, Hospitalization, Other)
  Sender: FDA-Public Use
  Company Number: 2015COV00005

PATIENT
  Age: 58 Year
  Sex: Female

DRUGS (5)
  1. HYDROCHLOROTHIAZIDE. [Concomitant]
     Active Substance: HYDROCHLOROTHIAZIDE
  2. CITALOPRAM [Concomitant]
     Active Substance: CITALOPRAM HYDROBROMIDE
  3. HYDROXYCHLOROQUINE [Suspect]
     Active Substance: HYDROXYCHLOROQUINE
     Indication: RHEUMATOID ARTHRITIS
  4. METHOTREXATE [Concomitant]
     Active Substance: METHOTREXATE
  5. ATENOLOL. [Concomitant]
     Active Substance: ATENOLOL

REACTIONS (9)
  - Pleural effusion [None]
  - Atonic seizures [None]
  - Atrial fibrillation [None]
  - Cardiac failure [None]
  - Cardiomyopathy [None]
  - Fall [None]
  - Bifascicular block [None]
  - Glomerular filtration rate decreased [None]
  - Cardiomegaly [None]
